FAERS Safety Report 6973871-2 (Version None)
Quarter: 2010Q3

REPORT INFORMATION
  Report Type: 
  Country: None (occurrence: None)
  Receive Date: 20100909
  Receipt Date: 20100830
  Transmission Date: 20110219
  Serious: Yes (Other)
  Sender: FDA-Public Use
  Company Number: B0673358A

PATIENT
  Sex: Female

DRUGS (1)
  1. AVAMYS [Suspect]
     Indication: RHINITIS
     Dosage: 27.5MG TWICE PER DAY
     Route: 045
     Dates: start: 20100820, end: 20100821

REACTIONS (2)
  - RASH GENERALISED [None]
  - SWELLING [None]
